FAERS Safety Report 8207689-X (Version None)
Quarter: 2012Q1

REPORT INFORMATION
  Report Type: 
  Country: None (occurrence: None)
  Receive Date: 20120313
  Receipt Date: 20120313
  Transmission Date: 20120608
  Serious: Yes (Hospitalization)
  Sender: FDA-Public Use
  Company Number: None

PATIENT
  Sex: Male
  Weight: 86.4 kg

DRUGS (1)
  1. PHENTERMINE [Suspect]
     Indication: WEIGHT DECREASED
     Dosage: PHENTERMINE (K25) 37.5MG PO Q24H APPROXIMATELY 1 YEAR, MAYBE MORE
     Route: 048

REACTIONS (9)
  - RESTLESSNESS [None]
  - CONFUSIONAL STATE [None]
  - HALLUCINATION, VISUAL [None]
  - INSOMNIA [None]
  - PALPITATIONS [None]
  - PSYCHOTIC DISORDER [None]
  - PANIC ATTACK [None]
  - JOINT SWELLING [None]
  - ABNORMAL BEHAVIOUR [None]
